FAERS Safety Report 15915706 (Version 1)
Quarter: 2019Q1

REPORT INFORMATION
  Report Type: Spontaneous
  Country: US (occurrence: US)
  Receive Date: 20190112
  Receipt Date: 20190112
  Transmission Date: 20190417
  Serious: Yes (Other)
  Sender: FDA-Public Use
  Company Number: None

PATIENT
  Age: 35 Year
  Sex: Female

DRUGS (2)
  1. FONDAPARINUX SOL 2.5MG/.5ML [Suspect]
     Active Substance: FONDAPARINUX
     Indication: EMBOLISM
     Route: 058
     Dates: start: 201701
  2. FONDAPARINUX SOL 2.5MG/.5ML [Suspect]
     Active Substance: FONDAPARINUX
     Indication: THROMBOSIS
     Route: 058
     Dates: start: 201701

REACTIONS (3)
  - Injection site swelling [None]
  - Injection site pain [None]
  - Injection site pruritus [None]

NARRATIVE: CASE EVENT DATE: 20190111
